FAERS Safety Report 9400467 (Version 1)
Quarter: 2013Q3

REPORT INFORMATION
  Report Type: Report from Study
  Country: CA (occurrence: CA)
  Receive Date: 20130715
  Receipt Date: 20130715
  Transmission Date: 20140515
  Serious: Yes (Death, Hospitalization)
  Sender: FDA-Public Use
  Company Number: CA-JNJFOC-20130617909

PATIENT
  Sex: Male
  Weight: 70.8 kg

DRUGS (2)
  1. REMICADE [Suspect]
     Indication: COLITIS ULCERATIVE
     Route: 042
     Dates: start: 20110404
  2. REMICADE [Suspect]
     Indication: COLITIS ULCERATIVE
     Dosage: LAST TREATMENT
     Route: 042
     Dates: start: 20130430

REACTIONS (2)
  - Haemorrhage [Fatal]
  - Infection [Unknown]
